FAERS Safety Report 24632207 (Version 1)
Quarter: 2024Q4

REPORT INFORMATION
  Report Type: Spontaneous
  Country: NO (occurrence: NO)
  Receive Date: 20241118
  Receipt Date: 20241118
  Transmission Date: 20250115
  Serious: Yes (Other)
  Sender: NOVARTIS
  Company Number: NO-002147023-NVSC2024NO130082

PATIENT
  Sex: Female

DRUGS (3)
  1. LEQVIO [Suspect]
     Active Substance: INCLISIRAN SODIUM
     Indication: Coronary artery disease
     Dosage: 284 MG (ONLY ONE  INJECTION  WAS  GIVEN)
     Route: 058
     Dates: start: 20240415, end: 20240415
  2. LEQVIO [Suspect]
     Active Substance: INCLISIRAN SODIUM
     Indication: Diabetes mellitus
  3. LEQVIO [Suspect]
     Active Substance: INCLISIRAN SODIUM
     Indication: Drug intolerance

REACTIONS (4)
  - Blood glucose abnormal [Unknown]
  - Bone pain [Recovering/Resolving]
  - Ear infection [Recovering/Resolving]
  - Abdominal pain upper [Recovering/Resolving]
